FAERS Safety Report 5106113-3 (Version None)
Quarter: 2006Q3

REPORT INFORMATION
  Report Type: 
  Country: None (occurrence: None)
  Receive Date: 20060912
  Receipt Date: 20060830
  Transmission Date: 20061208
  Serious: Yes (Hospitalization)
  Sender: FDA-Public Use
  Company Number: 0608-596

PATIENT
  Age: 65 Year
  Sex: Male
  Weight: 90.7194 kg

DRUGS (6)
  1. DUONEB [Suspect]
     Indication: FIBROSIS
     Dosage: 1 AMP TID-NEBULIZER
     Dates: start: 20040101, end: 20050101
  2. MUCINEX [Concomitant]
  3. ROBITUSSIN DM [Concomitant]
  4. LOVASTATIN [Concomitant]
  5. AMBIEN [Concomitant]
  6. ASPIRIN [Concomitant]

REACTIONS (3)
  - ANXIETY [None]
  - DRUG INEFFECTIVE [None]
  - POOR QUALITY DRUG ADMINISTERED [None]
